FAERS Safety Report 8227702-3 (Version None)
Quarter: 2012Q1

REPORT INFORMATION
  Report Type: 
  Country: None (occurrence: None)
  Receive Date: 20120322
  Receipt Date: 20120313
  Transmission Date: 20120608
  Serious: No
  Sender: FDA-Public Use
  Company Number: US-B.I. PHARMACEUTICALS,INC./RIDGEFIELD-2012-BP-02445BP

PATIENT
  Sex: Female

DRUGS (10)
  1. COMBIVENT [Suspect]
     Indication: CHRONIC OBSTRUCTIVE PULMONARY DISEASE
  2. ASPIRIN [Concomitant]
  3. IPRATROPIUM [Concomitant]
  4. THALLADRINE [Concomitant]
     Dosage: 400 MG
  5. VITAMIN D [Concomitant]
  6. THEOPHYLLINE [Concomitant]
  7. COMBIVENT [Suspect]
     Indication: DYSPNOEA
  8. ADVAIR DISKUS 100/50 [Concomitant]
  9. ALENDRONATE SODIUM [Concomitant]
  10. CALCIUM/VIT D [Concomitant]

REACTIONS (2)
  - DYSPNOEA [None]
  - DRUG INEFFECTIVE [None]
